FAERS Safety Report 19436610 (Version 1)
Quarter: 2021Q2

REPORT INFORMATION
  Report Type: Spontaneous
  Country: CA (occurrence: CA)
  Receive Date: 20210618
  Receipt Date: 20210618
  Transmission Date: 20210717
  Serious: Yes (Death, Hospitalization, Other)
  Sender: FDA-Public Use
  Company Number: CA-SAMSUNG BIOEPIS-SB-2021-14863

PATIENT
  Age: 59 Year
  Sex: Male
  Weight: 98 kg

DRUGS (1)
  1. INFLIXIMAB [Suspect]
     Active Substance: INFLIXIMAB
     Indication: CROHN^S DISEASE
     Route: 042

REACTIONS (11)
  - Fatigue [Fatal]
  - Inappropriate schedule of product administration [Fatal]
  - Intentional product use issue [Fatal]
  - Back pain [Fatal]
  - Duodenal neoplasm [Fatal]
  - Asthenia [Fatal]
  - Therapeutic response shortened [Fatal]
  - Faecal calprotectin increased [Fatal]
  - Pancreatitis acute [Fatal]
  - Dyspepsia [Fatal]
  - Off label use [Fatal]
